FAERS Safety Report 6820544-2 (Version None)
Quarter: 2010Q3

REPORT INFORMATION
  Report Type: 
  Country: None (occurrence: None)
  Receive Date: 20100707
  Receipt Date: 20100225
  Transmission Date: 20110219
  Serious: Yes (Other)
  Sender: FDA-Public Use
  Company Number: US-CELGENEUS-163-20785-10063006

PATIENT
  Sex: Female

DRUGS (22)
  1. THALOMID [Suspect]
     Route: 048
     Dates: start: 20000701
  2. THALOMID [Suspect]
     Dosage: 50-200 MG
     Route: 048
     Dates: start: 20011001, end: 20030301
  3. THALOMID [Suspect]
     Route: 048
     Dates: start: 20050701, end: 20050801
  4. THALOMID [Suspect]
     Route: 048
     Dates: start: 20061001, end: 20061101
  5. THALOMID [Suspect]
     Route: 048
     Dates: start: 20070601, end: 20070701
  6. THALOMID [Suspect]
     Route: 048
     Dates: start: 20090701, end: 20090801
  7. DEXAMETHASONE [Concomitant]
     Route: 065
     Dates: start: 20050601
  8. DEXAMETHASONE [Concomitant]
     Route: 065
     Dates: start: 20051201, end: 20080701
  9. DEXAMETHASONE [Concomitant]
     Route: 065
     Dates: start: 20090601
  10. SIROLIMUS [Concomitant]
     Route: 065
     Dates: start: 20090601
  11. ADRIAMYCIN PFS [Concomitant]
     Route: 065
     Dates: start: 20050601
  12. ADRIAMYCIN PFS [Concomitant]
     Route: 065
     Dates: start: 20051201
  13. CYCLOPHOSPHAMIDE [Concomitant]
     Route: 065
     Dates: start: 20050601
  14. CYCLOPHOSPHAMIDE [Concomitant]
     Route: 065
     Dates: start: 20051201
  15. ETOPOSIDE [Concomitant]
     Route: 065
     Dates: start: 20050601
  16. ETOPOSIDE [Concomitant]
     Route: 065
     Dates: start: 20051201
  17. VELCADE [Concomitant]
     Route: 065
     Dates: start: 20050601
  18. VELCADE [Concomitant]
     Route: 065
     Dates: start: 20051201
  19. VELCADE [Concomitant]
     Route: 065
     Dates: start: 20070901
  20. VELCADE [Concomitant]
     Route: 065
     Dates: start: 20090101
  21. CISPLATIN [Concomitant]
     Route: 065
     Dates: start: 20050601
  22. CISPLATIN [Concomitant]
     Route: 065
     Dates: start: 20051201

REACTIONS (3)
  - ACUTE LYMPHOCYTIC LEUKAEMIA [None]
  - MYELOMA RECURRENCE [None]
  - PANCYTOPENIA [None]
